FAERS Safety Report 5413369-6 (Version None)
Quarter: 2007Q3

REPORT INFORMATION
  Report Type: 
  Country: None (occurrence: None)
  Receive Date: 20070814
  Receipt Date: 20070806
  Transmission Date: 20080115
  Serious: Yes (Other)
  Sender: FDA-Public Use
  Company Number: US-JNJFOC-20070801764

PATIENT
  Sex: Male
  Weight: 120.2 kg

DRUGS (6)
  1. DURAGESIC-100 [Suspect]
     Indication: PAIN
     Route: 062
  2. DARVOCET [Concomitant]
     Indication: PAIN
     Route: 048
  3. LEXAPRO [Concomitant]
     Indication: DEPRESSION
     Route: 048
  4. COZAAR [Concomitant]
     Indication: BLOOD CHOLESTEROL
     Route: 048
  5. NOVOLOG [Concomitant]
     Indication: DIABETES MELLITUS
     Dosage: 1 UNIT OR HIGHER, AFTER EVERY MEAL
     Route: 058
  6. LANTUS [Concomitant]
     Indication: DIABETES MELLITUS
     Dosage: EVERY EVENING
     Route: 058

REACTIONS (3)
  - HYPERHIDROSIS [None]
  - HYPERTENSION [None]
  - INAPPROPRIATE SCHEDULE OF DRUG ADMINISTRATION [None]
